FAERS Safety Report 4470098-3 (Version None)
Quarter: 2004Q3

REPORT INFORMATION
  Report Type: 
  Country: None (occurrence: None)
  Receive Date: 20040910
  Receipt Date: 20040728
  Transmission Date: 20050211
  Serious: No
  Sender: FDA-Public Use
  Company Number: 2004-00290

PATIENT
  Age: 82 Year
  Sex: Male
  Weight: 68 kg

DRUGS (1)
  1. VELCADE [Suspect]
     Indication: MULTIPLE MYELOMA
     Dosage: ^USUAL DOSE^, INTRAVENOUS
     Route: 042
     Dates: start: 20040719

REACTIONS (3)
  - ASTHENIA [None]
  - DIZZINESS [None]
  - OEDEMA PERIPHERAL [None]
